FAERS Safety Report 5960654-5 (Version None)
Quarter: 2008Q4

REPORT INFORMATION
  Report Type: 
  Country: None (occurrence: None)
  Receive Date: 20081120
  Receipt Date: 20080717
  Transmission Date: 20090506
  Serious: No
  Sender: FDA-Public Use
  Company Number: US-ABBOTT-08P-163-0463339-00

PATIENT
  Sex: Female

DRUGS (1)
  1. BIAXIN [Suspect]
     Indication: BRONCHITIS
     Dates: start: 20060101, end: 20060101

REACTIONS (2)
  - SWELLING FACE [None]
  - SWOLLEN TONGUE [None]
